FAERS Safety Report 23509825 (Version 2)
Quarter: 2024Q1

REPORT INFORMATION
  Report Type: Report from Study
  Country: GB (occurrence: GB)
  Receive Date: 20240210
  Receipt Date: 20240306
  Transmission Date: 20240410
  Serious: Yes (Other)
  Sender: FDA-Public Use
  Company Number: GB-002147023-NVSC2024GB021955

PATIENT
  Age: 78 Year
  Sex: Male

DRUGS (2)
  1. MAYZENT [Suspect]
     Active Substance: SIPONIMOD
     Indication: Multiple sclerosis
     Dosage: 1 MG, QD
     Route: 048
     Dates: start: 20240122
  2. MAYZENT [Suspect]
     Active Substance: SIPONIMOD
     Dosage: 1 MG, QD
     Route: 048
     Dates: start: 20240127

REACTIONS (12)
  - Sleep apnoea syndrome [Not Recovered/Not Resolved]
  - Middle insomnia [Not Recovered/Not Resolved]
  - Suffocation feeling [Unknown]
  - Dyspnoea [Unknown]
  - Mobility decreased [Recovering/Resolving]
  - Self-injurious ideation [Not Recovered/Not Resolved]
  - Pruritus [Unknown]
  - Conjunctivitis [Unknown]
  - Eye pain [Unknown]
  - Ocular hyperaemia [Unknown]
  - Depressed mood [Unknown]
  - Fatigue [Unknown]

NARRATIVE: CASE EVENT DATE: 20240101
